FAERS Safety Report 12245949 (Version 1)
Quarter: 2016Q2

REPORT INFORMATION
  Report Type: Spontaneous
  Country: US (occurrence: US)
  Receive Date: 20160407
  Receipt Date: 20160407
  Transmission Date: 20160815
  Serious: No
  Sender: FDA-Public Use
  Company Number: US-WATSON-2015-17867

PATIENT
  Sex: Female

DRUGS (6)
  1. NORTRIPTYLINE HYDROCHLORIDE (WATSON LABORATORIES) [Suspect]
     Active Substance: NORTRIPTYLINE HYDROCHLORIDE
     Indication: VULVOVAGINAL BURNING SENSATION
     Dosage: 25 MG, QPM
     Route: 065
     Dates: start: 20150312, end: 20150412
  2. PREMARIN [Concomitant]
     Active Substance: ESTROGENS, CONJUGATED
     Indication: URINARY TRACT INFECTION
     Dosage: 10 MG, BID
     Route: 065
     Dates: start: 201402
  3. GABAPENTIN. [Concomitant]
     Active Substance: GABAPENTIN
     Indication: VULVOVAGINAL BURNING SENSATION
     Dosage: 6 %, BID
     Route: 067
     Dates: end: 20150628
  4. TRAMADOL HCL [Concomitant]
     Active Substance: TRAMADOL HYDROCHLORIDE
     Indication: PAIN
     Dosage: 50 MG, Q6H
     Route: 065
  5. FLUCONAZOLE. [Concomitant]
     Active Substance: FLUCONAZOLE
     Indication: FUNGAL INFECTION
     Dosage: 100 MG, DAILY
     Route: 065
     Dates: end: 20150613
  6. CEPHALEXIN                         /00145501/ [Concomitant]
     Active Substance: CEPHALEXIN
     Indication: VULVOVAGINAL BURNING SENSATION
     Dosage: 500 MG, BID
     Route: 065
     Dates: end: 20150528

REACTIONS (1)
  - Drug ineffective [Unknown]
